FAERS Safety Report 8237531-2 (Version None)
Quarter: 2012Q1

REPORT INFORMATION
  Report Type: 
  Country: None (occurrence: None)
  Receive Date: 20120327
  Receipt Date: 20120314
  Transmission Date: 20120608
  Serious: Yes (Other)
  Sender: FDA-Public Use
  Company Number: JP-UCBSA-052130

PATIENT
  Sex: Male

DRUGS (1)
  1. XYZAL [Suspect]
     Route: 048

REACTIONS (1)
  - INFERTILITY MALE [None]
